FAERS Safety Report 19840896 (Version 1)
Quarter: 2021Q3

REPORT INFORMATION
  Report Type: Spontaneous
  Country: BR (occurrence: BR)
  Receive Date: 20210916
  Receipt Date: 20210916
  Transmission Date: 20211014
  Serious: Yes (Hospitalization, Other)
  Sender: FDA-Public Use
  Company Number: BR-AMGEN-BRASP2021140388

PATIENT
  Age: 62 Year
  Sex: Female
  Weight: 56 kg

DRUGS (3)
  1. TRAMADOL. [Concomitant]
     Active Substance: TRAMADOL
     Dosage: UNK
  2. CODEINE [Concomitant]
     Active Substance: CODEINE
     Dosage: UNK
  3. NEUPOGEN [Suspect]
     Active Substance: FILGRASTIM
     Indication: NEUTROPENIA
     Dosage: 300 MICROGRAM, 1 PER
     Route: 042

REACTIONS (1)
  - Pelvic pain [Recovered/Resolved]

NARRATIVE: CASE EVENT DATE: 20210617
